FAERS Safety Report 9331733 (Version 1)
Quarter: 2013Q2

REPORT INFORMATION
  Report Type: Spontaneous
  Country: CN (occurrence: CN)
  Receive Date: 20130605
  Receipt Date: 20130605
  Transmission Date: 20140414
  Serious: Yes (Other)
  Sender: FDA-Public Use
  Company Number: CN-ASTRAZENECA-2013SE40120

PATIENT
  Sex: Male
  Weight: 58 kg

DRUGS (2)
  1. ROSUVASTATIN [Suspect]
     Indication: CEREBRAL INFARCTION
     Route: 048
     Dates: start: 20120704, end: 20120801
  2. UNSPECIFIED INGREDIENTS [Suspect]
     Indication: CEREBRAL INFARCTION

REACTIONS (4)
  - Hepatic function abnormal [Recovering/Resolving]
  - Aspartate aminotransferase increased [None]
  - Alanine aminotransferase increased [None]
  - Blood alkaline phosphatase increased [None]
